FAERS Safety Report 5689901-4 (Version None)
Quarter: 2008Q1

REPORT INFORMATION
  Report Type: 
  Country: None (occurrence: None)
  Receive Date: 20080331
  Receipt Date: 20080331
  Transmission Date: 20080703
  Serious: No
  Sender: FDA-Public Use
  Company Number: None

PATIENT
  Sex: Female
  Weight: 54.4316 kg

DRUGS (5)
  1. SINGULAIR [Suspect]
     Indication: ASTHMA
     Dosage: 10MG ONCE DAILY PO
     Route: 048
  2. CLARINEX [Concomitant]
  3. ZOLOFT [Concomitant]
  4. VIVELLE-DOT [Concomitant]
  5. PROMETRIUM [Concomitant]

REACTIONS (4)
  - ABNORMAL DREAMS [None]
  - ANXIETY [None]
  - DEPRESSION [None]
  - ILL-DEFINED DISORDER [None]
